FAERS Safety Report 7596106 (Version 2)
Quarter: 2014Q1

REPORT INFORMATION
  Report Type: Report from Study
  Country: US (occurrence: US)
  Receive Date: 20100920
  Receipt Date: 20140306
  Transmission Date: 20141002
  Serious: No
  Sender: FDA-Public Use
  Company Number: US-ASTRAZENECA-2010SE22043

PATIENT
  Age: 30 Year
  Sex: Female
  Weight: 63.5 kg

DRUGS (4)
  1. SEROQUEL XR [Suspect]
     Indication: MAJOR DEPRESSION
     Route: 048
     Dates: start: 2009, end: 20140226
  2. SEROQUEL XR [Suspect]
     Indication: POST-TRAUMATIC STRESS DISORDER
     Route: 048
     Dates: start: 2009, end: 20140226
  3. SEROQUEL XR [Suspect]
     Indication: EATING DISORDER
     Route: 048
     Dates: start: 2009, end: 20140226
  4. SEROQUEL XR [Suspect]
     Indication: INSOMNIA
     Route: 048
     Dates: start: 2009, end: 20140226

REACTIONS (14)
  - Headache [Unknown]
  - Anxiety [Unknown]
  - Mental disorder [Unknown]
  - Disturbance in attention [Unknown]
  - Insomnia [Unknown]
  - Cold sweat [Unknown]
  - Eye disorder [Unknown]
  - General physical condition abnormal [Unknown]
  - Eye swelling [Unknown]
  - Hyperhidrosis [Unknown]
  - Feeling abnormal [Unknown]
  - Fatigue [Unknown]
  - Off label use [Unknown]
  - Drug dose omission [Unknown]
